FAERS Safety Report 19264423 (Version 1)
Quarter: 2021Q2

REPORT INFORMATION
  Report Type: Spontaneous
  Country: US (occurrence: US)
  Receive Date: 20210517
  Receipt Date: 20210517
  Transmission Date: 20210717
  Serious: Yes (Other)
  Sender: FDA-Public Use
  Company Number: None

PATIENT
  Age: 63 Year
  Sex: Female

DRUGS (1)
  1. NP THYROID [Suspect]
     Active Substance: LEVOTHYROXINE\LIOTHYRONINE
     Indication: HYPOTHYROIDISM
     Dosage: ?          QUANTITY:70 TABLET(S);?
     Route: 048
     Dates: start: 20210328, end: 20210328

REACTIONS (9)
  - Weight increased [None]
  - Fatigue [None]
  - Arthralgia [None]
  - Hypothyroidism [None]
  - Myalgia [None]
  - Feeling abnormal [None]
  - Disturbance in attention [None]
  - Feeling cold [None]
  - Dry skin [None]

NARRATIVE: CASE EVENT DATE: 20210328
